FAERS Safety Report 4699484-3 (Version None)
Quarter: 2005Q2

REPORT INFORMATION
  Report Type: 
  Country: None (occurrence: None)
  Receive Date: 20050624
  Receipt Date: 20050406
  Transmission Date: 20051028
  Serious: Yes (Hospitalization)
  Sender: FDA-Public Use
  Company Number: US-MERCK-0504USA00758

PATIENT
  Age: 58 Year
  Sex: Male

DRUGS (11)
  1. VYTORIN [Suspect]
     Indication: HYPERLIPIDAEMIA
     Route: 048
     Dates: start: 20041101, end: 20050206
  2. LASIX [Concomitant]
     Indication: CARDIAC FAILURE CONGESTIVE
     Route: 048
  3. LANOXIN [Concomitant]
     Indication: CARDIAC FAILURE CONGESTIVE
     Route: 048
  4. ASPIRIN [Concomitant]
     Route: 048
  5. ACTONEL [Concomitant]
     Route: 048
  6. COUMADIN [Concomitant]
     Route: 048
  7. COUMADIN [Concomitant]
     Route: 048
  8. LISINOPRIL-BC [Concomitant]
     Route: 048
  9. INSPRA [Concomitant]
     Route: 048
     Dates: end: 20050206
  10. METOPROLOL [Concomitant]
     Route: 048
  11. PROTONIX [Concomitant]
     Route: 048

REACTIONS (22)
  - ABDOMINAL DISTENSION [None]
  - ASPARTATE AMINOTRANSFERASE INCREASED [None]
  - BILE DUCT STONE [None]
  - BLOOD ALKALINE PHOSPHATASE INCREASED [None]
  - CARDIAC FAILURE CONGESTIVE [None]
  - CHOLELITHIASIS [None]
  - DISCOMFORT [None]
  - DIVERTICULUM DUODENAL [None]
  - DIZZINESS [None]
  - DYSPNOEA [None]
  - HEPATIC CONGESTION [None]
  - HEPATITIS [None]
  - HEPATOTOXICITY [None]
  - HIATUS HERNIA [None]
  - OXYGEN SATURATION DECREASED [None]
  - PALPITATIONS [None]
  - RESTLESS LEGS SYNDROME [None]
  - SENSATION OF HEAVINESS [None]
  - SYNCOPE [None]
  - TACHYCARDIA [None]
  - TRANSIENT ISCHAEMIC ATTACK [None]
  - VOMITING [None]
